FAERS Safety Report 19296399 (Version 1)
Quarter: 2021Q2

REPORT INFORMATION
  Report Type: Spontaneous
  Country: SE (occurrence: SE)
  Receive Date: 20210524
  Receipt Date: 20210524
  Transmission Date: 20210717
  Serious: Yes (Disabling)
  Sender: FDA-Public Use
  Company Number: SE-TEVA-2021-SE-1913857

PATIENT
  Age: 50 Year
  Sex: Male
  Weight: 85 kg

DRUGS (2)
  1. LAMOTRIGIN RATIOPHARM [Suspect]
     Active Substance: LAMOTRIGINE
     Dosage: 2 X 200 AND 1 X 50 , UNIT DOSE : 50 MG
     Route: 048
     Dates: start: 1999, end: 2020
  2. LAMOTRIGIN RATIOPHARM [Suspect]
     Active Substance: LAMOTRIGINE
     Indication: BIPOLAR II DISORDER
     Dosage: 2 X 200 AND 1 X 50
     Route: 048
     Dates: start: 1999, end: 2020

REACTIONS (9)
  - Anxiety [Recovering/Resolving]
  - Balance disorder [Recovering/Resolving]
  - Gait disturbance [Recovered/Resolved with Sequelae]
  - Memory impairment [Recovering/Resolving]
  - Muscular weakness [Not Recovered/Not Resolved]
  - Fatigue [Not Recovered/Not Resolved]
  - Vision blurred [Recovering/Resolving]
  - Chest discomfort [Not Recovered/Not Resolved]
  - Tremor [Recovering/Resolving]

NARRATIVE: CASE EVENT DATE: 2018
